FAERS Safety Report 22340744 (Version 1)
Quarter: 2023Q2

REPORT INFORMATION
  Report Type: Spontaneous
  Country: FR (occurrence: FR)
  Receive Date: 20230518
  Receipt Date: 20230518
  Transmission Date: 20230721
  Serious: No
  Sender: FDA-Public Use
  Company Number: FR-JAZZ PHARMACEUTICALS-2023-FR-007843

PATIENT

DRUGS (6)
  1. SODIUM OXYBATE [Suspect]
     Active Substance: SODIUM OXYBATE
     Indication: Narcolepsy
     Dosage: UNK
  2. SODIUM OXYBATE [Suspect]
     Active Substance: SODIUM OXYBATE
     Indication: Hypersomnia
  3. PITOLISANT [Suspect]
     Active Substance: PITOLISANT
     Indication: Hypersomnia
     Dosage: UNK
  4. PITOLISANT [Suspect]
     Active Substance: PITOLISANT
     Indication: Narcolepsy
  5. DEXTROAMPHETAMINE [Suspect]
     Active Substance: DEXTROAMPHETAMINE
     Indication: Hypersomnia
     Dosage: UNK
  6. DEXTROAMPHETAMINE [Suspect]
     Active Substance: DEXTROAMPHETAMINE
     Indication: Narcolepsy

REACTIONS (2)
  - Drug ineffective [Unknown]
  - Off label use [Unknown]
